FAERS Safety Report 15747030 (Version 1)
Quarter: 2018Q4

REPORT INFORMATION
  Report Type: Spontaneous
  Country: IT (occurrence: IT)
  Receive Date: 20181220
  Receipt Date: 20181220
  Transmission Date: 20190205
  Serious: Yes (Other)
  Sender: FDA-Public Use
  Company Number: IT-JNJFOC-20171118038

PATIENT
  Age: 25 Year
  Sex: Female

DRUGS (7)
  1. TENOFOVIR [Suspect]
     Active Substance: TENOFOVIR
     Indication: HIV INFECTION
     Dosage: PRIOR DOSE OF 300 MG ONCE DAILY RESTARTED AFTER SHE CAME BACK TO ITALY AT UNKNOWN DOSE
     Route: 065
     Dates: start: 20151101
  2. RALTEGRAVIR. [Suspect]
     Active Substance: RALTEGRAVIR
     Indication: HIV INFECTION
     Route: 065
  3. DOLUTEGRAVIR [Concomitant]
     Active Substance: DOLUTEGRAVIR
     Indication: HIV INFECTION
     Route: 065
     Dates: start: 20160101
  4. RITONAVIR. [Suspect]
     Active Substance: RITONAVIR
     Indication: HIV INFECTION
     Route: 065
     Dates: start: 20151101
  5. MARAVIROC [Suspect]
     Active Substance: MARAVIROC
     Indication: HIV INFECTION
     Dosage: PRIOR DOSE OF 150 MG TWICE DAILY, RESTARTED AFTER SHE CAME BACK TO ITALY AT UNKNOWN DOSE
     Route: 065
     Dates: start: 20151101
  6. ZIDOVUDINE. [Concomitant]
     Active Substance: ZIDOVUDINE
     Indication: ANTIVIRAL PROPHYLAXIS
     Route: 042
  7. DARUNAVIR [Suspect]
     Active Substance: DARUNAVIR
     Indication: HIV INFECTION
     Route: 048
     Dates: start: 20151101

REACTIONS (5)
  - Pathogen resistance [Unknown]
  - Antiviral drug level below therapeutic [Unknown]
  - Exposure during pregnancy [Recovered/Resolved]
  - Caesarean section [Unknown]
  - Treatment noncompliance [Unknown]
